FAERS Safety Report 19712859 (Version 2)
Quarter: 2021Q3

REPORT INFORMATION
  Report Type: Report from Study
  Country: GT (occurrence: GT)
  Receive Date: 20210817
  Receipt Date: 20210922
  Transmission Date: 20211014
  Serious: Yes (Life-Threatening)
  Sender: FDA-Public Use
  Company Number: NVSC2020GT191428

PATIENT
  Age: 40 Year
  Sex: Female

DRUGS (3)
  1. SCAPHO [Suspect]
     Active Substance: SECUKINUMAB
     Dosage: 150 MG, QMO (BENEATH THE SKIN USUALLY VIA INJECTION)
     Route: 058
  2. SCAPHO [Suspect]
     Active Substance: SECUKINUMAB
     Indication: ANKYLOSING SPONDYLITIS
     Dosage: 150 MG, QMO (BENEATH THE SKIN USUALLY VIA INJECTION)
     Route: 058
     Dates: start: 20200601
  3. SCAPHO [Suspect]
     Active Substance: SECUKINUMAB
     Dosage: 150 MG, QMO (BENEATH THE SKIN USUALLY VIA INJECTION)
     Route: 058

REACTIONS (19)
  - Hernia [Unknown]
  - Feeling abnormal [Unknown]
  - Fatigue [Unknown]
  - Malaise [Unknown]
  - COVID-19 [Unknown]
  - Influenza [Unknown]
  - Depressed mood [Unknown]
  - Headache [Unknown]
  - Inflammation [Unknown]
  - Abdominal discomfort [Unknown]
  - Pain in jaw [Unknown]
  - Arthralgia [Unknown]
  - Eye infection [Unknown]
  - Pain in extremity [Unknown]
  - Pain [Unknown]
  - Hypersensitivity [Unknown]
  - Pharyngitis [Unknown]
  - Ear infection [Unknown]
  - Back pain [Recovering/Resolving]

NARRATIVE: CASE EVENT DATE: 20200630
